FAERS Safety Report 23830198 (Version 2)
Quarter: 2024Q3

REPORT INFORMATION
  Report Type: Spontaneous
  Country: US (occurrence: US)
  Receive Date: 20240508
  Receipt Date: 20240808
  Transmission Date: 20241017
  Serious: No
  Sender: BRISTOL MYERS SQUIBB
  Company Number: US-BRISTOL-MYERS SQUIBB COMPANY-2024-071322

PATIENT
  Age: 33 Year
  Sex: Female

DRUGS (1)
  1. OPDIVO [Suspect]
     Active Substance: NIVOLUMAB
     Indication: Appendix cancer
     Dosage: VIAL
     Route: 042

REACTIONS (2)
  - Treatment noncompliance [Unknown]
  - Off label use [Unknown]
